FAERS Safety Report 9818250 (Version 4)
Quarter: 2014Q2

REPORT INFORMATION
  Report Type: Report from Study
  Country: US (occurrence: US)
  Receive Date: 20140115
  Receipt Date: 20140401
  Transmission Date: 20141212
  Serious: Yes (Hospitalization)
  Sender: FDA-Public Use
  Company Number: US-JNJFOC-20140104088

PATIENT
  Age: 70 Year
  Sex: Female
  Weight: 101.15 kg

DRUGS (22)
  1. REMICADE [Suspect]
     Indication: RHEUMATOID ARTHRITIS
     Route: 042
     Dates: start: 20131127, end: 20131127
  2. REMICADE [Suspect]
     Indication: RHEUMATOID ARTHRITIS
     Route: 042
     Dates: start: 20131017
  3. FISH OIL [Concomitant]
     Dosage: DOSE: 1200 (UNITS NOT SPECIFIED)
     Route: 065
  4. PREDNISONE [Concomitant]
     Indication: RHEUMATOID ARTHRITIS
     Route: 048
  5. PREDNISONE [Concomitant]
     Indication: RHEUMATOID ARTHRITIS
     Route: 048
  6. PREDNISONE [Concomitant]
     Indication: RHEUMATOID ARTHRITIS
     Route: 048
     Dates: end: 20131127
  7. JANUVIA [Concomitant]
     Indication: TYPE 2 DIABETES MELLITUS
     Route: 048
  8. METFORMIN [Concomitant]
     Indication: TYPE 2 DIABETES MELLITUS
     Route: 048
  9. METHOTREXATE [Concomitant]
     Route: 050
  10. METHOTREXATE [Concomitant]
     Dosage: DOSE MENTIONED AS 0.5 (UNITS NOT SPECIFIED)
     Route: 050
  11. VITAMIN C [Concomitant]
     Route: 065
  12. PROTONIX [Concomitant]
     Route: 065
  13. LEVOTHYROXINE [Concomitant]
     Route: 065
  14. RAMIPRIL [Concomitant]
     Route: 065
  15. SIMVASTATIN [Concomitant]
     Route: 065
  16. ASPIRIN [Concomitant]
     Route: 065
  17. FOLIC ACID [Concomitant]
     Route: 065
  18. CALCIUM [Concomitant]
     Route: 065
  19. CARAFATE [Concomitant]
     Route: 065
  20. TRAMADOL [Concomitant]
     Route: 065
  21. OSTEO BI-FLEX [Concomitant]
     Dosage: DOSE MENTIONED AS TRIPLE
     Route: 065
  22. VITAMIN D [Concomitant]
     Dosage: DOSE: 1000 (UNITS NOT SPECIFIED)
     Route: 065

REACTIONS (4)
  - Muscle spasms [Recovering/Resolving]
  - Gastrooesophageal reflux disease [Recovering/Resolving]
  - Rheumatoid arthritis [Not Recovered/Not Resolved]
  - Drug ineffective [Unknown]
